FAERS Safety Report 5514158-4 (Version None)
Quarter: 2007Q4

REPORT INFORMATION
  Report Type: 
  Country: None (occurrence: None)
  Receive Date: 20071113
  Receipt Date: 20071105
  Transmission Date: 20080405
  Serious: Yes (Hospitalization)
  Sender: FDA-Public Use
  Company Number: NO-JNJFOC-20071101034

PATIENT
  Age: 67 Year
  Sex: Female

DRUGS (4)
  1. DOXORUBICIN HCL [Suspect]
     Indication: OVARIAN CANCER
     Dosage: 5 CYCLES ADMINISTERED
     Route: 042
  2. CORTISONE ACETATE TAB [Concomitant]
     Route: 065
  3. LAKTULOSE [Concomitant]
     Route: 065
  4. AFIPRAN [Concomitant]
     Route: 065

REACTIONS (7)
  - COLITIS ISCHAEMIC [None]
  - CONSTIPATION [None]
  - GENERAL PHYSICAL HEALTH DETERIORATION [None]
  - HEPATIC FAILURE [None]
  - HEPATIC ISCHAEMIA [None]
  - RENAL ISCHAEMIA [None]
  - URINARY TRACT INFECTION [None]
